FAERS Safety Report 16548645 (Version 3)
Quarter: 2019Q3

REPORT INFORMATION
  Report Type: Spontaneous
  Country: US (occurrence: US)
  Receive Date: 20190709
  Receipt Date: 20190913
  Transmission Date: 20191004
  Serious: Yes (Hospitalization)
  Sender: FDA-Public Use
  Company Number: US-PFIZER INC-2019292935

PATIENT
  Age: 56 Year
  Sex: Male
  Weight: 62.99 kg

DRUGS (8)
  1. SIROLIMUS. [Interacting]
     Active Substance: SIROLIMUS
     Dosage: 2 MG, DAILY
     Dates: start: 20190402
  2. IMBRUVICA [Interacting]
     Active Substance: IBRUTINIB
     Indication: GRAFT VERSUS HOST DISEASE
     Dosage: 420 MG, 1X/DAY
     Route: 048
     Dates: start: 201905, end: 201906
  3. PREDNISONE. [Concomitant]
     Active Substance: PREDNISONE
     Dosage: 10 MG, DAILY
     Dates: start: 20190715
  4. SIROLIMUS. [Interacting]
     Active Substance: SIROLIMUS
     Dosage: UNK
     Dates: start: 201906
  5. IMBRUVICA [Interacting]
     Active Substance: IBRUTINIB
     Dosage: 420 MG, UNK
     Dates: start: 20190605
  6. VITAMIN D [VITAMIN D NOS] [Concomitant]
     Active Substance: VITAMIN D NOS
     Dosage: UNK
  7. SIROLIMUS. [Interacting]
     Active Substance: SIROLIMUS
     Dosage: 1 MG, DAILY
  8. SIROLIMUS. [Suspect]
     Active Substance: SIROLIMUS
     Indication: GRAFT VERSUS HOST DISEASE
     Dosage: 2 MG, 1X/DAY
     Route: 048
     Dates: start: 201905, end: 201906

REACTIONS (6)
  - Immune system disorder [Recovered/Resolved]
  - Drug interaction [Recovered/Resolved]
  - Product use in unapproved indication [Unknown]
  - Metapneumovirus infection [Recovered/Resolved]
  - Pneumonia [Recovered/Resolved]
  - Off label use [Unknown]

NARRATIVE: CASE EVENT DATE: 201905
